FAERS Safety Report 5466963-0 (Version None)
Quarter: 2007Q3

REPORT INFORMATION
  Report Type: 
  Country: None (occurrence: None)
  Receive Date: 20070921
  Receipt Date: 20070921
  Transmission Date: 20080115
  Serious: Yes (Other)
  Sender: FDA-Public Use
  Company Number: None

PATIENT
  Age: 66 Year
  Sex: Female
  Weight: 49.8957 kg

DRUGS (1)
  1. HYOSCYAMIE 0.125MG KREMERS URBAN [Suspect]
     Dosage: PLACE 1 TABLET UNDER TONGUE EVERY 8 HOURS AS NEEDED
     Route: 060

REACTIONS (2)
  - PHARMACEUTICAL PRODUCT COMPLAINT [None]
  - POOR QUALITY DRUG ADMINISTERED [None]
